FAERS Safety Report 8447628-X (Version None)
Quarter: 2012Q2

REPORT INFORMATION
  Report Type: 
  Country: None (occurrence: None)
  Receive Date: 20120619
  Receipt Date: 20120615
  Transmission Date: 20120825
  Serious: Yes (Life-Threatening)
  Sender: FDA-Public Use
  Company Number: SE-ASTRAZENECA-2012SE40145

PATIENT
  Sex: Female

DRUGS (7)
  1. HEPARIN [Concomitant]
  2. INTEGRILIN [Concomitant]
     Dates: start: 20120602
  3. NOREPINEPHRINE BITARTRATE [Concomitant]
  4. ASPIRIN [Concomitant]
     Dates: start: 20120602
  5. BRILINTA [Suspect]
     Route: 048
     Dates: start: 20120602, end: 20120612
  6. ARTROX [Concomitant]
  7. PIPERACILLIN AND TAZOBACTAM [Concomitant]

REACTIONS (1)
  - THROMBOCYTOPENIA [None]
